FAERS Safety Report 7067950-1 (Version None)
Quarter: 2010Q4

REPORT INFORMATION
  Report Type: 
  Country: None (occurrence: None)
  Receive Date: 20101010
  Receipt Date: 20101012
  Transmission Date: 20110411
  Serious: Yes (Hospitalization)
  Sender: FDA-Public Use
  Company Number: 2005-135098-NL

PATIENT
  Age: 22 Year
  Sex: Female
  Weight: 100 kg

DRUGS (3)
  1. IMPLANON [Suspect]
     Indication: PRODUCT USED FOR UNKNOWN INDICATION
     Dosage: 1 DF; SC
     Route: 058
     Dates: start: 20051013
  2. DESLORATADINE [Suspect]
     Indication: URTICARIA CHRONIC
     Dosage: PO
     Route: 048
     Dates: start: 20050611
  3. VENTOLIN [Concomitant]

REACTIONS (1)
  - URTICARIA [None]
